FAERS Safety Report 24914638 (Version 1)
Quarter: 2025Q1

REPORT INFORMATION
  Report Type: Spontaneous
  Country: US (occurrence: US)
  Receive Date: 20250203
  Receipt Date: 20250203
  Transmission Date: 20250408
  Serious: No
  Sender: ROCHE
  Company Number: US-ROCHE-10000193141

PATIENT
  Age: 43 Year
  Sex: Female

DRUGS (2)
  1. RITUXIMAB [Suspect]
     Active Substance: RITUXIMAB
     Indication: Thrombotic thrombocytopenic purpura
     Route: 040
  2. CABLIVI [Suspect]
     Active Substance: CAPLACIZUMAB-YHDP
     Indication: Thrombotic thrombocytopenic purpura
     Route: 058

REACTIONS (8)
  - Platelet count decreased [Unknown]
  - Contusion [Unknown]
  - Anxiety [Unknown]
  - Impaired healing [Unknown]
  - Blood lactate dehydrogenase increased [Unknown]
  - Chest discomfort [Unknown]
  - Coital bleeding [Unknown]
  - Rash [Unknown]

NARRATIVE: CASE EVENT DATE: 20240101
